FAERS Safety Report 8259466-1 (Version None)
Quarter: 2012Q2

REPORT INFORMATION
  Report Type: 
  Country: None (occurrence: None)
  Receive Date: 20120404
  Receipt Date: 20120322
  Transmission Date: 20120825
  Serious: Yes (Other)
  Sender: FDA-Public Use
  Company Number: GB-MYLANLABS-2012S1006277

PATIENT
  Age: 47 Year
  Sex: Female
  Weight: 81 kg

DRUGS (5)
  1. RAMIPRIL [Concomitant]
     Dates: start: 20111219
  2. AMLODIPINE [Concomitant]
     Dates: start: 20111219
  3. LOSARTAN POTASSIUM [Suspect]
     Indication: PRODUCT USED FOR UNKNOWN INDICATION
     Dates: start: 20120131
  4. RAMIPRIL [Concomitant]
     Indication: PRODUCT USED FOR UNKNOWN INDICATION
     Dates: start: 20111116, end: 20111214
  5. AMLODIPINE [Concomitant]
     Indication: PRODUCT USED FOR UNKNOWN INDICATION
     Dates: start: 20111116, end: 20111214

REACTIONS (2)
  - DYSPNOEA [None]
  - OROPHARYNGEAL PAIN [None]
